FAERS Safety Report 6068505-8 (Version None)
Quarter: 2009Q1

REPORT INFORMATION
  Report Type: 
  Country: None (occurrence: None)
  Receive Date: 20090206
  Receipt Date: 20090129
  Transmission Date: 20090719
  Serious: Yes (Death, Hospitalization)
  Sender: FDA-Public Use
  Company Number: US-GENENTECH-249104

PATIENT
  Sex: Male

DRUGS (5)
  1. AVASTIN [Suspect]
     Indication: RECTAL CANCER
     Dosage: UNK
     Route: 042
  2. LEUCOVORIN CALCIUM [Suspect]
     Indication: RECTAL CANCER
     Dosage: UNK
     Route: 042
  3. FLUOROURACIL [Suspect]
     Indication: RECTAL CANCER
     Dosage: UNK
     Route: 042
  4. OXALIPLATIN [Suspect]
     Indication: RECTAL CANCER
     Dosage: UNK
     Route: 042
  5. RADIOTHERAPY [Concomitant]
     Indication: RECTAL CANCER

REACTIONS (1)
  - INTERSTITIAL LUNG DISEASE [None]
